FAERS Safety Report 11879236 (Version 2)
Quarter: 2016Q1

REPORT INFORMATION
  Report Type: Spontaneous
  Country: US (occurrence: US)
  Receive Date: 20151230
  Receipt Date: 20160111
  Transmission Date: 20160526
  Serious: Yes (Other)
  Sender: FDA-Public Use
  Company Number: US-PFIZER INC-2015459703

PATIENT
  Age: 42 Year
  Sex: Female

DRUGS (4)
  1. LETROZOLE. [Concomitant]
     Active Substance: LETROZOLE
     Indication: BREAST CANCER METASTATIC
     Dosage: NO DAYS OFF
     Dates: start: 201505
  2. IBRANCE [Suspect]
     Active Substance: PALBOCICLIB
     Dosage: 100 MG, CYCLIC (21 DAYS ON/7 DAYS OFF) (WITH FOOD AT DINNERTIME)
  3. IBRANCE [Suspect]
     Active Substance: PALBOCICLIB
     Indication: BREAST CANCER METASTATIC
     Dosage: 125 MG, CYCLIC (21 DAYS ON/7 DAYS OFF) (WITH FOOD AT DINNERTIME)
     Dates: start: 201505
  4. IBRANCE [Suspect]
     Active Substance: PALBOCICLIB
     Dosage: 75 MG, CYCLIC (21 DAYS ON/7 DAYS OFF) (WITH FOOD AT DINNERTIME)
     Dates: start: 20151120

REACTIONS (2)
  - White blood cell count decreased [Unknown]
  - Oral pain [Unknown]
